FAERS Safety Report 6861502-1 (Version None)
Quarter: 2010Q3

REPORT INFORMATION
  Report Type: 
  Country: None (occurrence: None)
  Receive Date: 20100720
  Receipt Date: 20100720
  Transmission Date: 20110219
  Serious: Yes (Hospitalization)
  Sender: FDA-Public Use
  Company Number: None

PATIENT
  Age: 81 Year
  Sex: Male

DRUGS (2)
  1. UFH (UNFRACTIONATED HEPARIN) [Suspect]
     Indication: ANTICOAGULANT THERAPY
     Dosage: 9000 IU IV, OTHER
     Route: 042
     Dates: start: 20091202, end: 20091202
  2. ENOXAPARIN SODIUM [Suspect]

REACTIONS (1)
  - HAEMORRHAGE [None]
